FAERS Safety Report 15913273 (Version 1)
Quarter: 2019Q1

REPORT INFORMATION
  Report Type: Spontaneous
  Country: US (occurrence: US)
  Receive Date: 20190204
  Receipt Date: 20190204
  Transmission Date: 20190417
  Serious: Yes (Other)
  Sender: FDA-Public Use
  Company Number: US-PFIZER INC-2019037877

PATIENT
  Sex: Male
  Weight: 106.58 kg

DRUGS (2)
  1. GABAPENTIN. [Suspect]
     Active Substance: GABAPENTIN
     Indication: PAIN IN EXTREMITY
     Dosage: UNK
     Dates: start: 2015
  2. IRBESARTAN. [Concomitant]
     Active Substance: IRBESARTAN
     Indication: HYPERTENSION
     Dosage: 150 MG, 1X/DAY
     Route: 048

REACTIONS (2)
  - Suicidal ideation [Recovered/Resolved]
  - Product use in unapproved indication [Unknown]
